FAERS Safety Report 6206445-1 (Version None)
Quarter: 2009Q2

REPORT INFORMATION
  Report Type: 
  Country: None (occurrence: None)
  Receive Date: 20090528
  Receipt Date: 20090521
  Transmission Date: 20091009
  Serious: Yes (Other)
  Sender: FDA-Public Use
  Company Number: PHEH2007US05503

PATIENT
  Sex: Male

DRUGS (1)
  1. ZOMETA [Suspect]

REACTIONS (7)
  - ANXIETY [None]
  - APPENDICECTOMY [None]
  - DIVERTICULITIS [None]
  - INJURY [None]
  - INTESTINAL RESECTION [None]
  - OSTEONECROSIS [None]
  - PAIN [None]
